FAERS Safety Report 25899348 (Version 1)
Quarter: 2025Q4

REPORT INFORMATION
  Report Type: Report from Study
  Country: US (occurrence: US)
  Receive Date: 20251009
  Receipt Date: 20251009
  Transmission Date: 20260119
  Serious: Yes (Other)
  Sender: JOHNSON AND JOHNSON
  Company Number: US-TAKEDA-2025TUS088002

PATIENT

DRUGS (3)
  1. BORTEZOMIB [Suspect]
     Active Substance: BORTEZOMIB
     Indication: Plasma cell myeloma
     Dosage: 1.3 MILLIGRAM/SQ. METER
     Route: 058
  2. TOLODODEKIN ALFA [Suspect]
     Active Substance: TOLODODEKIN ALFA
     Indication: Plasma cell myeloma
     Dosage: 1800 MILLIGRAM
     Route: 058
  3. DEXAMETHASONE [Suspect]
     Active Substance: DEXAMETHASONE
     Indication: Plasma cell myeloma
     Dosage: 20 MILLIGRAM, 1/WEEK
     Route: 065

REACTIONS (34)
  - Sinus tachycardia [Unknown]
  - Dry eye [Unknown]
  - Weight increased [Unknown]
  - White blood cell count decreased [Unknown]
  - Lymphocyte count decreased [Unknown]
  - Eye disorder [Unknown]
  - Tremor [Unknown]
  - Agitation [Unknown]
  - Dermatitis bullous [Unknown]
  - Hot flush [Unknown]
  - Skin ulcer [Unknown]
  - Rash maculo-papular [Unknown]
  - Injection site reaction [Unknown]
  - Non-cardiac chest pain [Unknown]
  - Herpes zoster [Unknown]
  - Sinusitis [Unknown]
  - Pneumonia [Unknown]
  - Alanine aminotransferase increased [Unknown]
  - Aspartate aminotransferase increased [Unknown]
  - Neutrophil count decreased [Unknown]
  - Platelet count decreased [Unknown]
  - Hyperglycaemia [Unknown]
  - Headache [Unknown]
  - Paraesthesia [Unknown]
  - Peripheral sensory neuropathy [Unknown]
  - Anxiety [Unknown]
  - Pruritus [Unknown]
  - Anaemia [Unknown]
  - Constipation [Unknown]
  - Diarrhoea [Unknown]
  - Fatigue [Unknown]
  - Pyrexia [Unknown]
  - Conjunctivitis [Unknown]
  - Oedema peripheral [Unknown]
